FAERS Safety Report 5769457-8 (Version None)
Quarter: 2008Q2

REPORT INFORMATION
  Report Type: 
  Country: None (occurrence: None)
  Receive Date: 20080612
  Receipt Date: 20080328
  Transmission Date: 20081010
  Serious: No
  Sender: FDA-Public Use
  Company Number: US-ABBOTT-08P-163-0444466-00

PATIENT
  Age: 37 Year
  Sex: Female
  Weight: 34.05 kg

DRUGS (2)
  1. HUMIRA [Suspect]
     Indication: CROHN'S DISEASE
     Route: 058
     Dates: start: 20070201
  2. METHOTREXATE [Concomitant]
     Indication: CROHN'S DISEASE
     Route: 030
     Dates: start: 20080101

REACTIONS (3)
  - FATIGUE [None]
  - INFLUENZA [None]
  - NAUSEA [None]
